FAERS Safety Report 24378919 (Version 1)
Quarter: 2024Q3

REPORT INFORMATION
  Report Type: Spontaneous
  Country: US (occurrence: None)
  Receive Date: 20240929
  Receipt Date: 20240929
  Transmission Date: 20241017
  Serious: Yes (Disabling)
  Sender: Public
  Company Number: None

PATIENT
  Age: 42 Year
  Sex: Male
  Weight: 166.05 kg

DRUGS (9)
  1. ABILIFY [Suspect]
     Active Substance: ARIPIPRAZOLE
     Indication: Bipolar disorder
     Dates: start: 20140902
  2. ABILIFY [Suspect]
     Active Substance: ARIPIPRAZOLE
     Indication: Schizoaffective disorder
  3. ZYPREXA [Suspect]
     Active Substance: OLANZAPINE
  4. HALDOL [Suspect]
     Active Substance: HALOPERIDOL
  5. GEODON [Suspect]
     Active Substance: ZIPRASIDONE HYDROCHLORIDE\ZIPRASIDONE MESYLATE
  6. SEROQUEL [Suspect]
     Active Substance: QUETIAPINE FUMARATE
  7. LITHIUM [Suspect]
     Active Substance: LITHIUM
  8. RISPERIDONE [Suspect]
     Active Substance: RISPERIDONE
  9. SAPHRIS [Suspect]
     Active Substance: ASENAPINE MALEATE

REACTIONS (3)
  - Weight increased [None]
  - Intrusive thoughts [None]
  - Psychotic disorder [None]

NARRATIVE: CASE EVENT DATE: 20200908
